FAERS Safety Report 8061864-6 (Version None)
Quarter: 2012Q1

REPORT INFORMATION
  Report Type: 
  Country: None (occurrence: None)
  Receive Date: 20120117
  Receipt Date: 20120109
  Transmission Date: 20120608
  Serious: Yes (Death)
  Sender: FDA-Public Use
  Company Number: 1000026393

PATIENT
  Age: 27 Year
  Sex: Male
  Weight: 84.82 kg

DRUGS (2)
  1. BYSTOLIC [Suspect]
     Indication: HYPERTENSION
     Dosage: 5 MG ; 5 MG (5 MG)
     Dates: start: 20110323, end: 20110623
  2. BYSTOLIC [Suspect]
     Indication: HYPERTENSION
     Dosage: 5 MG ; 5 MG (5 MG)
     Dates: start: 20111208, end: 20111212

REACTIONS (1)
  - HEADACHE [None]
